FAERS Safety Report 12792391 (Version 3)
Quarter: 2017Q2

REPORT INFORMATION
  Report Type: Spontaneous
  Country: US (occurrence: US)
  Receive Date: 20160929
  Receipt Date: 20170607
  Transmission Date: 20170830
  Serious: Yes (Other)
  Sender: FDA-Public Use
  Company Number: US-JNJFOC-20160917976

PATIENT
  Sex: Male

DRUGS (10)
  1. RISPERDAL [Suspect]
     Active Substance: RISPERIDONE
     Indication: HALLUCINATION, AUDITORY
     Route: 048
     Dates: end: 20131111
  2. RISPERDAL [Suspect]
     Active Substance: RISPERIDONE
     Indication: PSYCHOTIC DISORDER
     Dosage: 0.5 MG TO3 MG
     Route: 048
     Dates: start: 201205, end: 201310
  3. RISPERIDONE. [Suspect]
     Active Substance: RISPERIDONE
     Indication: ATTENTION DEFICIT/HYPERACTIVITY DISORDER
     Route: 048
     Dates: start: 201205, end: 201208
  4. RISPERDAL [Suspect]
     Active Substance: RISPERIDONE
     Indication: ATTENTION DEFICIT/HYPERACTIVITY DISORDER
     Route: 048
     Dates: end: 20131111
  5. RISPERIDONE. [Suspect]
     Active Substance: RISPERIDONE
     Indication: ATTENTION DEFICIT/HYPERACTIVITY DISORDER
     Route: 048
     Dates: start: 201212
  6. RISPERIDONE. [Suspect]
     Active Substance: RISPERIDONE
     Indication: ATTENTION DEFICIT/HYPERACTIVITY DISORDER
     Route: 048
     Dates: start: 201301, end: 201311
  7. RISPERIDONE. [Suspect]
     Active Substance: RISPERIDONE
     Indication: ATTENTION DEFICIT/HYPERACTIVITY DISORDER
     Route: 048
     Dates: start: 201208, end: 201211
  8. RISPERDAL [Suspect]
     Active Substance: RISPERIDONE
     Indication: HALLUCINATION, AUDITORY
     Dosage: 0.5 MG TO3 MG
     Route: 048
     Dates: start: 201205, end: 201310
  9. RISPERDAL [Suspect]
     Active Substance: RISPERIDONE
     Indication: ATTENTION DEFICIT/HYPERACTIVITY DISORDER
     Dosage: 0.5 MG TO3 MG
     Route: 048
     Dates: start: 201205, end: 201310
  10. RISPERDAL [Suspect]
     Active Substance: RISPERIDONE
     Indication: PSYCHOTIC DISORDER
     Route: 048
     Dates: end: 20131111

REACTIONS (4)
  - Off label use [Unknown]
  - Abnormal weight gain [Recovering/Resolving]
  - Product use in unapproved indication [Unknown]
  - Gynaecomastia [Unknown]

NARRATIVE: CASE EVENT DATE: 2012
